FAERS Safety Report 4932240-7 (Version None)
Quarter: 2006Q1

REPORT INFORMATION
  Report Type: 
  Country: None (occurrence: None)
  Receive Date: 20060228
  Receipt Date: 20060215
  Transmission Date: 20060701
  Serious: Yes (Other)
  Sender: FDA-Public Use
  Company Number: 222191

PATIENT
  Age: 72 Year
  Sex: Male

DRUGS (6)
  1. MABTHERA (RITUXIMAB) CONC FOR SOLUTION FOR INFUSION [Suspect]
     Indication: NON-HODGKIN'S LYMPHOMA
     Dosage: 250 MG/M2, INTRAVENOUS
     Route: 042
     Dates: start: 20050112, end: 20050118
  2. ZEVALIN [Suspect]
     Indication: NON-HODGKIN'S LYMPHOMA
     Dosage: 0.4, INTRAVENOUS
     Route: 042
     Dates: start: 20050118
  3. IN-111 ZEVALIN (IBRITUMOMAB TIUXETAN, INDIUM-111) [Suspect]
     Indication: NON-HODGKIN'S LYMPHOMA
     Dosage: INTRAVENOUS
     Route: 042
     Dates: start: 20050112
  4. CLADRIBINE [Concomitant]
  5. MITOXANTRONE [Concomitant]
  6. RADIOTHERAPY (RADIATION THERAPY) [Concomitant]

REACTIONS (3)
  - HAEMOGLOBIN DECREASED [None]
  - NEUTROPHIL COUNT DECREASED [None]
  - WHITE BLOOD CELL COUNT DECREASED [None]
